FAERS Safety Report 19228629 (Version 1)
Quarter: 2021Q2

REPORT INFORMATION
  Report Type: Spontaneous
  Country: US (occurrence: US)
  Receive Date: 20210506
  Receipt Date: 20210506
  Transmission Date: 20210717
  Serious: No
  Sender: FDA-Public Use
  Company Number: US-ROCHE-2758268

PATIENT
  Age: 77 Year
  Sex: Female
  Weight: 53.12 kg

DRUGS (4)
  1. SYNTHROID [Suspect]
     Active Substance: LEVOTHYROXINE SODIUM
     Indication: HYPOTHYROIDISM
     Dosage: ONE DAILY FOR 6 DAYS AND 1/2 A PILL ON DAY SEVEN
     Route: 048
     Dates: start: 1963
  2. ESBRIET [Suspect]
     Active Substance: PIRFENIDONE
     Route: 048
     Dates: start: 2020
  3. ESBRIET [Suspect]
     Active Substance: PIRFENIDONE
     Dosage: TWO 267MG CAPSULES PER DOSE FOR ONE WEEK ;ONGOING: NO
     Route: 048
     Dates: start: 2020, end: 2020
  4. ESBRIET [Suspect]
     Active Substance: PIRFENIDONE
     Indication: IDIOPATHIC PULMONARY FIBROSIS
     Route: 048
     Dates: start: 20200725

REACTIONS (4)
  - Rash [Not Recovered/Not Resolved]
  - Sleep disorder [Not Recovered/Not Resolved]
  - Pruritus [Not Recovered/Not Resolved]
  - Dandruff [Not Recovered/Not Resolved]

NARRATIVE: CASE EVENT DATE: 202011
